FAERS Safety Report 7918770-4 (Version None)
Quarter: 2011Q4

REPORT INFORMATION
  Report Type: 
  Country: None (occurrence: None)
  Receive Date: 20111116
  Receipt Date: 20111108
  Transmission Date: 20120403
  Serious: Yes (Other)
  Sender: FDA-Public Use
  Company Number: US-US-EMD SERONO, INC.-7042046

PATIENT
  Sex: Female
  Weight: 52 kg

DRUGS (4)
  1. REBIF [Suspect]
     Indication: MULTIPLE SCLEROSIS
     Route: 058
     Dates: start: 20061103
  2. SYNTHROID [Concomitant]
     Indication: HYPOTHYROIDISM
  3. THYROID TAB [Concomitant]
     Indication: HYPOTHYROIDISM
  4. REBIF [Suspect]
     Route: 058
     Dates: start: 20100822

REACTIONS (2)
  - HAEMOCHROMATOSIS [None]
  - PORPHYRIA NON-ACUTE [None]
